FAERS Safety Report 11714442 (Version 7)
Quarter: 2018Q1

REPORT INFORMATION
  Report Type: Report from Study
  Country: IT (occurrence: IT)
  Receive Date: 20151109
  Receipt Date: 20180122
  Transmission Date: 20180508
  Serious: Yes (Hospitalization, Other)
  Sender: FDA-Public Use
  Company Number: PHHY2013IT151048

PATIENT
  Age: 69 Year
  Sex: Female

DRUGS (1)
  1. TASIGNA [Suspect]
     Active Substance: NILOTINIB
     Indication: CHRONIC MYELOID LEUKAEMIA
     Dosage: 600 MG, QD
     Route: 048
     Dates: start: 20110124, end: 20140812

REACTIONS (6)
  - Congestive cardiomyopathy [Unknown]
  - Nausea [Unknown]
  - Ventricular dysfunction [Unknown]
  - Syncope [Unknown]
  - Intervertebral disc protrusion [Unknown]
  - Arthralgia [Unknown]

NARRATIVE: CASE EVENT DATE: 20130921
